FAERS Safety Report 7260988-0 (Version None)
Quarter: 2011Q1

REPORT INFORMATION
  Report Type: 
  Country: None (occurrence: None)
  Receive Date: 20110130
  Receipt Date: 20101112
  Transmission Date: 20110831
  Serious: No
  Sender: FDA-Public Use
  Company Number: US-ABBOTT-10P-163-0685213-00

PATIENT
  Age: 54 Year
  Sex: Female

DRUGS (17)
  1. EFFEXOR XR [Concomitant]
     Indication: DEPRESSION
  2. XANAX [Concomitant]
     Indication: MOOD SWINGS
     Route: 048
  3. METHOTREXATE [Concomitant]
     Indication: RHEUMATOID ARTHRITIS
  4. TERAZOSIN [Concomitant]
     Indication: BLOOD PRESSURE
     Route: 048
  5. PREDNISONE [Concomitant]
     Indication: RHEUMATOID ARTHRITIS
  6. VITAMIN B-12 [Concomitant]
     Indication: PRODUCT USED FOR UNKNOWN INDICATION
     Route: 048
  7. MELOXICAM [Concomitant]
     Indication: RHEUMATOID ARTHRITIS
     Route: 048
  8. CENTRUM [Concomitant]
     Indication: PRODUCT USED FOR UNKNOWN INDICATION
     Route: 048
  9. FISH OIL [Concomitant]
     Indication: PRODUCT USED FOR UNKNOWN INDICATION
     Route: 048
  10. HYDROCODONE [Concomitant]
     Indication: PAIN
     Dosage: 7.5/500 MG, TAKES MAYBE ONE TIME A MONTH
  11. PLAQUENIL [Concomitant]
     Indication: RHEUMATOID ARTHRITIS
     Route: 048
  12. FOLIC ACID [Concomitant]
     Indication: PRODUCT USED FOR UNKNOWN INDICATION
     Dosage: 2 PILLS DAILY
  13. TRAZODONE [Concomitant]
     Indication: INSOMNIA
     Route: 048
  14. HUMIRA [Suspect]
     Indication: RHEUMATOID ARTHRITIS
     Dates: start: 20100201
  15. EFFEXOR XR [Concomitant]
     Indication: MOOD SWINGS
  16. CALTRATE WITH VITAMIN D [Concomitant]
     Indication: PRODUCT USED FOR UNKNOWN INDICATION
     Route: 048
  17. FERROUS GLUCONATE [Concomitant]
     Indication: ANAEMIA
     Route: 048

REACTIONS (4)
  - MASS [None]
  - PAIN [None]
  - BRONCHITIS [None]
  - COUGH [None]
